FAERS Safety Report 7636341-4 (Version None)
Quarter: 2011Q3

REPORT INFORMATION
  Report Type: 
  Country: None (occurrence: None)
  Receive Date: 20110726
  Receipt Date: 20110706
  Transmission Date: 20111222
  Serious: Yes (Congenital Anomaly)
  Sender: FDA-Public Use
  Company Number: US-GLAXOSMITHKLINE-A0934114A

PATIENT
  Sex: Male
  Weight: 2.9 kg

DRUGS (4)
  1. FOLIC ACID [Concomitant]
  2. REGLAN [Concomitant]
  3. PAXIL [Suspect]
     Indication: DEPRESSION
     Dosage: 10MG PER DAY
     Route: 064
  4. VITAMIN AND MINERAL PRENATAL SUPPLEMENT W/ FOLIC ACID CAP [Concomitant]

REACTIONS (2)
  - ARNOLD-CHIARI MALFORMATION [None]
  - MATERNAL EXPOSURE DURING PREGNANCY [None]
